FAERS Safety Report 9223040 (Version 1)
Quarter: 2013Q1

REPORT INFORMATION
  Report Type: Spontaneous
  Country: US (occurrence: None)
  Receive Date: 20120914
  Receipt Date: 20120914
  Transmission Date: 20140127
  Serious: Yes (Other)
  Sender: FDA-Public Use
  Company Number: JPI-P-018747

PATIENT
  Age: 53 Year
  Sex: Male

DRUGS (3)
  1. XYREM (500 MILLIGRAM/MILLILITERS, SOLUTION) (SODIUM OXYBATE) [Suspect]
     Indication: SLEEP APNOEA SYNDROME
     Route: 048
     Dates: start: 20060317
  2. FLUOXETINE HYDROCHLORIDE [Concomitant]
  3. LOSARTAN POTASSIUM-HYDROCHLOROTHIAZIDE [Concomitant]

REACTIONS (2)
  - Arthritis [None]
  - Arthralgia [None]
